FAERS Safety Report 9168926 (Version 1)
Quarter: 2013Q1

REPORT INFORMATION
  Report Type: Spontaneous
  Country: US (occurrence: None)
  Receive Date: 20130314
  Receipt Date: 20130314
  Transmission Date: 20140127
  Serious: Yes (Disabling)
  Sender: FDA-Public Use
  Company Number: None

PATIENT
  Age: 58 Year
  Sex: Female
  Weight: 99.79 kg

DRUGS (1)
  1. AMIODARONE [Suspect]
     Indication: CARDIAC DISORDER
     Dates: start: 201103, end: 201108

REACTIONS (3)
  - Vision blurred [None]
  - Visual impairment [None]
  - Visual acuity reduced [None]
